FAERS Safety Report 11550599 (Version 1)
Quarter: 2015Q3

REPORT INFORMATION
  Report Type: Spontaneous
  Country: US (occurrence: US)
  Receive Date: 20150903
  Receipt Date: 20150903
  Transmission Date: 20151125
  Serious: No
  Sender: FDA-Public Use
  Company Number: US-ELI_LILLY_AND_COMPANY-US201211009133

PATIENT
  Sex: Female

DRUGS (2)
  1. HUMALOG MIX75/25 [Suspect]
     Active Substance: INSULIN LISPRO
     Indication: DIABETES MELLITUS
     Dosage: 48 U, EACH MORNING
  2. HUMALOG MIX75/25 [Suspect]
     Active Substance: INSULIN LISPRO
     Dosage: 24 U, EACH EVENING

REACTIONS (7)
  - Malaise [Unknown]
  - Visual impairment [Unknown]
  - Blood glucose increased [Unknown]
  - Injury associated with device [Unknown]
  - Asthenia [Unknown]
  - Incorrect dose administered [Unknown]
  - Carpal tunnel syndrome [Unknown]
